FAERS Safety Report 25558097 (Version 1)
Quarter: 2025Q3

REPORT INFORMATION
  Report Type: Spontaneous
  Country: EU (occurrence: EU)
  Receive Date: 20250715
  Receipt Date: 20250715
  Transmission Date: 20251020
  Serious: Yes (Other)
  Sender: AMGEN
  Company Number: EU-AMGEN-BELSP2025134207

PATIENT

DRUGS (3)
  1. ADALIMUMAB [Suspect]
     Active Substance: ADALIMUMAB
     Indication: Colitis ulcerative
     Dosage: 40 MILLIGRAM, Q2WK
     Route: 065
  2. INFLIXIMAB [Concomitant]
     Active Substance: INFLIXIMAB
     Indication: Colitis ulcerative
     Dosage: 5 MILLIGRAM/KILOGRAM, Q8WK
     Route: 065
  3. VEDOLIZUMAB [Concomitant]
     Active Substance: VEDOLIZUMAB
     Indication: Colitis ulcerative
     Dosage: 300 MILLIGRAM, Q8WK
     Route: 065

REACTIONS (14)
  - Anastomotic leak [Unknown]
  - Urinary retention postoperative [Unknown]
  - Prostatitis [Unknown]
  - Embolism venous [Unknown]
  - Ileus paralytic [Unknown]
  - Post procedural haemorrhage [Unknown]
  - Deep vein thrombosis postoperative [Unknown]
  - Mechanical ileus [Unknown]
  - Abdominal abscess [Unknown]
  - Pelvic sepsis [Unknown]
  - Pyrexia [Unknown]
  - Urinary tract infection [Unknown]
  - Respiratory tract infection [Unknown]
  - Pulmonary embolism [Unknown]
